FAERS Safety Report 9325456 (Version 1)
Quarter: 2013Q2

REPORT INFORMATION
  Report Type: Spontaneous
  Country: US (occurrence: US)
  Receive Date: 20130604
  Receipt Date: 20130604
  Transmission Date: 20140414
  Serious: Yes (Other)
  Sender: FDA-Public Use
  Company Number: US-ROCHE-1231323

PATIENT
  Sex: Female

DRUGS (1)
  1. HERCEPTIN [Suspect]
     Indication: BREAST CANCER
     Dosage: INJECTION
     Route: 042

REACTIONS (2)
  - Mitral valve incompetence [Not Recovered/Not Resolved]
  - Cardiac valve disease [Not Recovered/Not Resolved]
